FAERS Safety Report 4305633-9 (Version None)
Quarter: 2004Q1

REPORT INFORMATION
  Report Type: 
  Country: None (occurrence: None)
  Receive Date: 20040226
  Receipt Date: 20031218
  Transmission Date: 20041129
  Serious: Yes (Hospitalization)
  Sender: FDA-Public Use
  Company Number: US-BRISTOL-MYERS SQUIBB COMPANY-12460903

PATIENT
  Age: 3 Decade
  Sex: Female

DRUGS (4)
  1. ABILIFY [Suspect]
     Indication: BIPOLAR DISORDER
     Dosage: DOSE RANGED FROM 10 MG/DAY TO 30 MG/DAY.
     Route: 048
     Dates: start: 20031213
  2. LAMICTAL [Concomitant]
  3. MELLARIL [Concomitant]
  4. QUININE [Concomitant]

REACTIONS (3)
  - DEPRESSION [None]
  - NAUSEA [None]
  - SUICIDAL IDEATION [None]
